FAERS Safety Report 16933366 (Version 1)
Quarter: 2019Q4

REPORT INFORMATION
  Report Type: Report from Study
  Country: NL (occurrence: NL)
  Receive Date: 20191018
  Receipt Date: 20191018
  Transmission Date: 20200122
  Serious: Yes (Hospitalization)
  Sender: FDA-Public Use
  Company Number: NL-ROCHE-2434935

PATIENT
  Age: 54 Year
  Sex: Female

DRUGS (11)
  1. ASCAL [CARBASALATE CALCIUM] [Concomitant]
     Route: 065
     Dates: start: 20130101
  2. METOPROLOL. [Concomitant]
     Active Substance: METOPROLOL
     Route: 065
  3. CAPECITABINE. [Suspect]
     Active Substance: CAPECITABINE
     Indication: BREAST CANCER METASTATIC
     Dosage: (1800 MG/M2 DAY 1-14 EVERY 22).
     Route: 048
     Dates: start: 20151014, end: 20151019
  4. BARNIDIPINE [Concomitant]
     Active Substance: BARNIDIPINE
     Route: 065
  5. MOMETASON [Concomitant]
     Active Substance: MOMETASONE FUROATE
     Route: 065
  6. BEVACIZUMAB. [Suspect]
     Active Substance: BEVACIZUMAB
     Indication: BREAST CANCER METASTATIC
     Dosage: ((15MG/KG) I.V. DAY 1: EVERY 22 AS PER PROTOCOL).
     Route: 042
     Dates: start: 20120418, end: 20150721
  7. OMEPRAZOLE. [Concomitant]
     Active Substance: OMEPRAZOLE
     Route: 065
  8. LEVOTHYROXINE. [Concomitant]
     Active Substance: LEVOTHYROXINE
     Route: 065
     Dates: start: 20120410
  9. PACLITAXEL. [Suspect]
     Active Substance: PACLITAXEL
     Indication: BREAST CANCER METASTATIC
     Dosage: (80 MG/M2 WEEKLY AS PER PROTOCOL).
     Route: 042
     Dates: start: 20120418, end: 20140624
  10. IRBESARTAN HCT [Concomitant]
     Active Substance: HYDROCHLOROTHIAZIDE\IRBESARTAN
     Dosage: 300/25 MG
     Route: 065
     Dates: start: 20120201
  11. SIMVASTATINE [Concomitant]
     Active Substance: SIMVASTATIN
     Route: 065

REACTIONS (1)
  - Arteriospasm coronary [Recovered/Resolved]

NARRATIVE: CASE EVENT DATE: 20151017
